FAERS Safety Report 16432323 (Version 1)
Quarter: 2019Q2

REPORT INFORMATION
  Report Type: Spontaneous
  Country: US (occurrence: US)
  Receive Date: 20190614
  Receipt Date: 20190614
  Transmission Date: 20190711
  Serious: No
  Sender: FDA-Public Use
  Company Number: US-JNJFOC-20190608443

PATIENT
  Sex: Male
  Weight: 86.18 kg

DRUGS (1)
  1. RISPERDAL [Suspect]
     Active Substance: RISPERIDONE
     Indication: PSYCHOTIC DISORDER
     Route: 048
     Dates: start: 20140315

REACTIONS (6)
  - Gait disturbance [Unknown]
  - Memory impairment [Unknown]
  - Weight increased [Unknown]
  - Pain in jaw [Unknown]
  - Gynaecomastia [Unknown]
  - Arthralgia [Unknown]
